FAERS Safety Report 5829833-1 (Version None)
Quarter: 2008Q3

REPORT INFORMATION
  Report Type: 
  Country: None (occurrence: None)
  Receive Date: 20080801
  Receipt Date: 20080723
  Transmission Date: 20090109
  Serious: Yes (Death)
  Sender: FDA-Public Use
  Company Number: US-TYCO HEALTHCARE/MALLINCKRODT-T200800680

PATIENT

DRUGS (19)
  1. OPTIMARK [Suspect]
     Indication: NUCLEAR MAGNETIC RESONANCE IMAGING BRAIN
     Dosage: UNK, SINGLE
     Dates: start: 20051129, end: 20051129
  2. OPTIMARK [Suspect]
     Dosage: UNK, SINGLE
     Dates: start: 20051214, end: 20051214
  3. OPTIMARK [Suspect]
     Dosage: UNK, SINGLE
     Dates: start: 20060303, end: 20060303
  4. OPTIMARK [Suspect]
     Dosage: UNK, SINGLE
     Dates: start: 20060407, end: 20060407
  5. OPTIMARK [Suspect]
     Indication: COMPUTERISED TOMOGRAM
     Dosage: UNK, SINGLE
     Dates: start: 20060325, end: 20060325
  6. LIPITOR [Concomitant]
     Indication: BLOOD CHOLESTEROL INCREASED
     Dates: start: 20050101, end: 20060101
  7. VYTORIN [Concomitant]
     Indication: BLOOD CHOLESTEROL INCREASED
     Dates: start: 20050101, end: 20060101
  8. HECTOROL [Concomitant]
     Indication: HYPERTHYROIDISM
     Dates: start: 20050101, end: 20060101
  9. SENSIPAR [Concomitant]
     Indication: HYPERTHYROIDISM
     Dates: start: 20050101, end: 20060101
  10. NORVASC [Concomitant]
     Indication: HYPERTENSION
     Dates: start: 20050101, end: 20060101
  11. TOPROL-XL [Concomitant]
     Indication: HYPERTENSION
     Dates: start: 20050101, end: 20060101
  12. NADOLOL [Concomitant]
     Indication: HYPERTENSION
     Dates: start: 20050101, end: 20060101
  13. CLONIDINE [Concomitant]
     Indication: HYPERTENSION
     Dates: start: 20050101, end: 20060101
  14. VERAPAMIL [Concomitant]
     Indication: HYPERTENSION
     Dates: start: 20050101, end: 20060101
  15. AMIODARONE [Concomitant]
     Indication: TACHYCARDIA
     Dates: start: 20050101, end: 20060101
  16. CARDIZEM [Concomitant]
     Indication: TACHYCARDIA
     Dates: start: 20050101, end: 20060101
  17. WARFARIN SODIUM [Concomitant]
     Indication: ANTICOAGULANT THERAPY
     Dates: start: 20050101, end: 20060101
  18. OXYCODONE HCL [Concomitant]
     Indication: ANALGESIA
     Dates: start: 20050101, end: 20060101
  19. PROPOXYPHENE [Concomitant]
     Indication: ANALGESIA
     Dates: start: 20050101, end: 20060101

REACTIONS (1)
  - NEPHROGENIC SYSTEMIC FIBROSIS [None]
